FAERS Safety Report 10735790 (Version 1)
Quarter: 2015Q1

REPORT INFORMATION
  Report Type: Spontaneous
  Country: US (occurrence: None)
  Receive Date: 20150120
  Receipt Date: 20150120
  Transmission Date: 20150721
  Serious: Yes (Other)
  Sender: FDA-Public Use
  Company Number: ADR-2015-00062

PATIENT
  Age: 42 Year
  Sex: Female

DRUGS (4)
  1. LIORESAL [Suspect]
     Active Substance: BACLOFEN
     Indication: MUSCLE SPASTICITY
     Dates: start: 20141208
  2. LINZESS [Suspect]
     Active Substance: LINACLOTIDE
  3. PROPRANOLOL [Suspect]
     Active Substance: PROPRANOLOL\PROPRANOLOL HYDROCHLORIDE
  4. ZANAFLEX [Suspect]
     Active Substance: TIZANIDINE HYDROCHLORIDE

REACTIONS (8)
  - Decubitus ulcer [None]
  - Medical device discomfort [None]
  - Implant site atrophy [None]
  - Implant site bruising [None]
  - Implant site reaction [None]
  - Implant site erythema [None]
  - Device deployment issue [None]
  - Implant site pain [None]
